FAERS Safety Report 25544883 (Version 1)
Quarter: 2025Q3

REPORT INFORMATION
  Report Type: Report from Study
  Country: CA (occurrence: CA)
  Receive Date: 20250711
  Receipt Date: 20250711
  Transmission Date: 20251021
  Serious: Yes (Other)
  Sender: NORDIC PHARMA
  Company Number: CA-NORDICGR-063152

PATIENT
  Age: 67 Year
  Sex: Male

DRUGS (8)
  1. METHOTREXATE [Suspect]
     Active Substance: METHOTREXATE
     Indication: Product used for unknown indication
     Route: 065
  2. METHOTREXATE [Suspect]
     Active Substance: METHOTREXATE
     Indication: Product used for unknown indication
     Dosage: 1 EVERY 1 WEEKS
     Route: 065
  3. KEVZARA [Concomitant]
     Active Substance: SARILUMAB
     Indication: Rheumatoid arthritis
     Dosage: 1 EVERY 2 WEEKS
     Route: 058
  4. KEVZARA [Concomitant]
     Active Substance: SARILUMAB
     Indication: Rheumatoid arthritis
     Dosage: 1 EVERY 2 WEEKS
     Route: 058
  5. KEVZARA [Concomitant]
     Active Substance: SARILUMAB
     Indication: Rheumatoid arthritis
     Dosage: 1 EVERY 2 WEEKS
     Route: 058
  6. ZENHALE [Concomitant]
     Active Substance: FORMOTEROL FUMARATE\MOMETASONE FUROATE
     Indication: Product used for unknown indication
  7. METOPROLOL [Concomitant]
     Active Substance: METOPROLOL
     Indication: Product used for unknown indication
     Route: 065
  8. APEXABAN [Concomitant]
     Indication: Product used for unknown indication
     Route: 065

REACTIONS (13)
  - Rhinorrhoea [Not Recovered/Not Resolved]
  - Lip haemorrhage [Unknown]
  - Pain [Not Recovered/Not Resolved]
  - Skin fissures [Unknown]
  - Influenza [Not Recovered/Not Resolved]
  - Lip pain [Not Recovered/Not Resolved]
  - Leukopenia [Unknown]
  - Sinus disorder [Not Recovered/Not Resolved]
  - Condition aggravated [Not Recovered/Not Resolved]
  - Oral herpes [Unknown]
  - Herpes zoster [Unknown]
  - Erythema [Not Recovered/Not Resolved]
  - Chapped lips [Unknown]
